FAERS Safety Report 10457868 (Version 1)
Quarter: 2014Q3

REPORT INFORMATION
  Report Type: Spontaneous
  Country: GB (occurrence: GB)
  Receive Date: 20140916
  Receipt Date: 20140916
  Transmission Date: 20150326
  Serious: Yes (Other)
  Sender: FDA-Public Use
  Company Number: GB-GLAXOSMITHKLINE-B1033468A

PATIENT
  Age: 61 Year
  Sex: Female

DRUGS (7)
  1. CYCLOPENTOLATE [Concomitant]
     Active Substance: CYCLOPENTOLATE
     Indication: ILL-DEFINED DISORDER
     Route: 065
  2. SALT SOLUTION [Concomitant]
     Indication: ILL-DEFINED DISORDER
     Route: 065
  3. EPINEPHRINE. [Concomitant]
     Active Substance: EPINEPHRINE
     Indication: ILL-DEFINED DISORDER
     Route: 065
  4. PHENYLEPHRINE [Concomitant]
     Active Substance: PHENYLEPHRINE\PHENYLEPHRINE HYDROCHLORIDE
     Indication: ILL-DEFINED DISORDER
     Route: 065
  5. PROXYMETACAINE [Concomitant]
     Indication: LOCAL ANAESTHESIA
     Route: 061
  6. LIGNOCAINE [Concomitant]
     Active Substance: LIDOCAINE HYDROCHLORIDE
     Indication: LOCAL ANAESTHESIA
     Route: 065
  7. ZINACEF [Suspect]
     Active Substance: CEFUROXIME SODIUM
     Indication: LENS EXTRACTION
     Route: 057

REACTIONS (6)
  - Anterior chamber inflammation [Unknown]
  - Vitritis [Unknown]
  - Visual acuity reduced [Unknown]
  - Cystoid macular oedema [Unknown]
  - Retinal toxicity [Unknown]
  - Macular degeneration [Recovered/Resolved]
